FAERS Safety Report 8515705-0 (Version None)
Quarter: 2012Q3

REPORT INFORMATION
  Report Type: 
  Country: None (occurrence: None)
  Receive Date: 20120717
  Receipt Date: 20120712
  Transmission Date: 20120928
  Serious: Yes (Hospitalization, Other)
  Sender: FDA-Public Use
  Company Number: PHHY2012DE037660

PATIENT
  Age: 76 Year
  Sex: Male

DRUGS (3)
  1. CLINDAMYCIN [Suspect]
     Indication: OSTEOMYELITIS CHRONIC
     Route: 048
  2. ACE INHIBITOR NOS [Suspect]
     Indication: HYPERTENSION
     Route: 048
  3. RASILEZ [Suspect]
     Indication: HYPERTENSION
     Dosage: 1 DF, QD
     Route: 048

REACTIONS (4)
  - OSTEOMYELITIS CHRONIC [None]
  - GLOMERULAR FILTRATION RATE DECREASED [None]
  - URINE OUTPUT DECREASED [None]
  - BLOOD CREATININE INCREASED [None]
